FAERS Safety Report 13070042 (Version 2)
Quarter: 2017Q1

REPORT INFORMATION
  Report Type: Report from Study
  Country: GB (occurrence: GB)
  Receive Date: 20161228
  Receipt Date: 20170125
  Transmission Date: 20170428
  Serious: Yes (Hospitalization)
  Sender: FDA-Public Use
  Company Number: GB-B.I. PHARMACEUTICALS,INC./RIDGEFIELD-2016-BI-074558

PATIENT
  Age: 43 Year
  Sex: Female
  Weight: 85.4 kg

DRUGS (7)
  1. PARACETEMOL [Concomitant]
     Indication: PAIN
     Dosage: QDS: 4 TIMES A DAY
     Route: 048
     Dates: start: 20161017
  2. CYCLIZINE [Concomitant]
     Active Substance: CYCLIZINE
     Indication: NAUSEA
     Dosage: STAT
     Route: 042
     Dates: start: 20161102, end: 20161102
  3. GAVISCON [Concomitant]
     Active Substance: ALUMINUM HYDROXIDE\MAGNESIUM CARBONATE
     Indication: NAUSEA
     Dosage: PRN
     Route: 048
     Dates: start: 20161026
  4. GEMCITABINE [Concomitant]
     Active Substance: GEMCITABINE\GEMCITABINE HYDROCHLORIDE
     Indication: BLADDER CANCER
     Dosage: DAY 1 TO DAY 8
     Route: 042
     Dates: start: 20160928
  5. CISPLATIN. [Suspect]
     Active Substance: CISPLATIN
     Indication: BLADDER CANCER
     Dosage: 3 WEEKLY
     Route: 042
     Dates: start: 20160928
  6. BIBF 1120 [Suspect]
     Active Substance: NINTEDANIB
     Indication: BLADDER CANCER
     Route: 048
     Dates: start: 20160928
  7. BETAHISTINE [Concomitant]
     Active Substance: BETAHISTINE
     Indication: VERTIGO
     Dosage: OD (ONCE A DAY)
     Route: 048
     Dates: start: 20161005

REACTIONS (1)
  - Urinary tract infection [Recovered/Resolved]

NARRATIVE: CASE EVENT DATE: 20161102
